FAERS Safety Report 13057554 (Version 1)
Quarter: 2016Q4

REPORT INFORMATION
  Report Type: Spontaneous
  Country: FI (occurrence: FI)
  Receive Date: 20161223
  Receipt Date: 20161223
  Transmission Date: 20170207
  Serious: Yes (Hospitalization, Other)
  Sender: FDA-Public Use
  Company Number: FI-ROCHE-1869317

PATIENT
  Age: 61 Year
  Sex: Female

DRUGS (18)
  1. CALCICHEW D3 FORTE [Concomitant]
     Active Substance: CALCIUM\CHOLECALCIFEROL
     Dosage: 500 MG/10 MCG
     Route: 065
  2. SIMVASTATIN RATIOPHARM [Concomitant]
     Active Substance: SIMVASTATIN
     Route: 065
  3. PREVNAR 13 [Concomitant]
     Active Substance: PNEUMOCOCCAL 13-VALENT CONJUGATE VACCINE
     Route: 065
  4. EMCONCOR CHF [Concomitant]
     Route: 065
  5. BUVENTOL EASYHALER [Concomitant]
     Active Substance: ALBUTEROL SULFATE
     Dosage: 1-2 DOSES 4 TIMES A DAY
     Route: 065
  6. PREDNISOLON [Concomitant]
     Active Substance: PREDNISOLONE
     Route: 065
  7. LOSATRIX [Concomitant]
     Active Substance: LOSARTAN POTASSIUM
     Route: 065
  8. DINIT (FINLAND) [Concomitant]
     Dosage: 1-3 TIMES A DAY
     Route: 065
  9. MABTHERA [Suspect]
     Active Substance: RITUXIMAB
     Indication: RHEUMATOID ARTHRITIS
     Dosage: THREE INFUSION
     Route: 042
     Dates: start: 20161026
  10. ORMOX [Concomitant]
     Route: 065
  11. LEVEMIR [Concomitant]
     Active Substance: INSULIN DETEMIR
     Dosage: UNIT DOSE: 21-25 IU?100 U/ML
     Route: 065
  12. ESOMEPRAZOL RATIOPHARM [Concomitant]
     Active Substance: ESOMEPRAZOLE
     Route: 065
  13. PRIMASPAN [Concomitant]
     Active Substance: ASPIRIN
     Route: 065
  14. PULMICORT TURBUHALER [Concomitant]
     Active Substance: BUDESONIDE
     Dosage: 1 DOSE AS NEEDED
     Route: 065
  15. NOVORAPID [Concomitant]
     Active Substance: INSULIN ASPART
     Dosage: 100 U/ML
     Route: 065
  16. IBUXIN [Concomitant]
     Active Substance: IBUPROFEN
     Route: 065
  17. SYMBICORT [Concomitant]
     Active Substance: BUDESONIDE\FORMOTEROL FUMARATE DIHYDRATE
     Dosage: SYMBICORT TURBUHALER
     Route: 050
  18. FURESIS [Concomitant]
     Active Substance: FUROSEMIDE
     Route: 065

REACTIONS (2)
  - Myocardial infarction [Recovered/Resolved]
  - Off label use [Unknown]

NARRATIVE: CASE EVENT DATE: 20161109
